FAERS Safety Report 24531230 (Version 3)
Quarter: 2025Q3

REPORT INFORMATION
  Report Type: Spontaneous
  Country: JP (occurrence: JP)
  Receive Date: 20241022
  Receipt Date: 20250810
  Transmission Date: 20251020
  Serious: Yes (Other)
  Sender: ALEXION PHARMACEUTICALS
  Company Number: JP-ASTRAZENECA-240108767_010520_P_1

PATIENT
  Age: 36 Year
  Sex: Female
  Weight: 48 kg

DRUGS (6)
  1. FULVESTRANT [Suspect]
     Active Substance: FULVESTRANT
     Indication: Breast cancer recurrent
     Dosage: 500 MILLIGRAM, QMONTH
     Dates: start: 202409
  2. FULVESTRANT [Suspect]
     Active Substance: FULVESTRANT
     Dosage: 500 MILLIGRAM, QMONTH
     Dates: start: 20240904
  3. TRUQAP [Suspect]
     Active Substance: CAPIVASERTIB
     Indication: Breast cancer recurrent
     Dosage: ADMINISTERED FOR 4 CONSECTIVE DAYS, AND THEN WITHDRAWN FOR 3 DAYS
     Dates: start: 20240904, end: 20240918
  4. TRUQAP [Suspect]
     Active Substance: CAPIVASERTIB
     Dosage: ADMINISTERED FOR 4 CONSECTIVE DAYS, AND THEN WITHDRAWN FOR 3 DAYS
     Dates: start: 20240925
  5. TRUQAP [Suspect]
     Active Substance: CAPIVASERTIB
  6. LEUPLIN [Concomitant]
     Active Substance: LEUPROLIDE ACETATE
     Indication: Breast cancer recurrent

REACTIONS (1)
  - Rash [Recovered/Resolved]

NARRATIVE: CASE EVENT DATE: 20240913
